FAERS Safety Report 8214180-3 (Version None)
Quarter: 2012Q1

REPORT INFORMATION
  Report Type: 
  Country: None (occurrence: None)
  Receive Date: 20120316
  Receipt Date: 20120314
  Transmission Date: 20120608
  Serious: Yes (Hospitalization)
  Sender: FDA-Public Use
  Company Number: US-PFIZER INC-2012067794

PATIENT
  Sex: Male
  Weight: 127 kg

DRUGS (13)
  1. XANAX [Suspect]
     Indication: ANXIETY
  2. CYMBALTA [Concomitant]
     Indication: DEPRESSION
     Dosage: 60 MG, DAILY
  3. ISOSORBIDE [Concomitant]
     Dosage: 30 MG, DAILY
  4. TAMSULOSIN HYDROCHLORIDE [Concomitant]
     Dosage: 0.4 MG, DAILY
  5. ZOCOR [Concomitant]
     Indication: HYPERTENSION
  6. CYMBALTA [Concomitant]
     Indication: PAIN
  7. METOPROLOL [Concomitant]
     Indication: CARDIAC DISORDER
     Dosage: 50 MG, DAILY
  8. XANAX [Suspect]
     Indication: DEPRESSION
  9. XANAX [Suspect]
     Indication: PANIC ATTACK
     Dosage: 0.5 MG TWO TABLETS, 3X/DAY
     Route: 048
     Dates: start: 19950501
  10. PREVACID [Concomitant]
     Indication: GASTROOESOPHAGEAL REFLUX DISEASE
     Dosage: 30 MG, 2X/DAY
  11. ACETYLSALICYLIC ACID [Concomitant]
     Indication: ANTICOAGULANT THERAPY
     Dosage: 325 MG, DAILY
  12. PLAVIX [Suspect]
     Dosage: UNK
     Dates: end: 20120313
  13. ZOCOR [Concomitant]
     Indication: BLOOD CHOLESTEROL INCREASED
     Dosage: 20 MG, DAILY

REACTIONS (1)
  - RENAL DISORDER [None]
